FAERS Safety Report 7512837-0 (Version None)
Quarter: 2011Q2

REPORT INFORMATION
  Report Type: 
  Country: None (occurrence: None)
  Receive Date: 20110531
  Receipt Date: 20110517
  Transmission Date: 20111010
  Serious: Yes (Other)
  Sender: FDA-Public Use
  Company Number: US-ELI_LILLY_AND_COMPANY-US201105005056

PATIENT
  Age: 58 Year
  Sex: Male

DRUGS (2)
  1. ANALGESICS [Concomitant]
  2. CYMBALTA [Suspect]
     Indication: BACK PAIN
     Dosage: 30 MG, EACH EVENING
     Dates: start: 20110514

REACTIONS (7)
  - MALAISE [None]
  - FEELING OF BODY TEMPERATURE CHANGE [None]
  - URINARY HESITATION [None]
  - HYPERHIDROSIS [None]
  - THINKING ABNORMAL [None]
  - DYSPNOEA [None]
  - POOR QUALITY SLEEP [None]
